FAERS Safety Report 24316547 (Version 3)
Quarter: 2024Q4

REPORT INFORMATION
  Report Type: Spontaneous
  Country: CO (occurrence: CO)
  Receive Date: 20240913
  Receipt Date: 20241009
  Transmission Date: 20250115
  Serious: Yes (Other)
  Sender: SANOFI AVENTIS
  Company Number: CO-SA-SAC20230322001035

PATIENT
  Age: 48 Year
  Sex: Female
  Weight: 59 kg

DRUGS (12)
  1. LANTUS [Suspect]
     Active Substance: INSULIN GLARGINE
     Indication: Type 2 diabetes mellitus
     Dosage: 38 U, QD
     Route: 058
     Dates: start: 201205
  2. LANTUS [Suspect]
     Active Substance: INSULIN GLARGINE
     Dosage: 25 IU, QD
     Route: 058
  3. INSULIN GLULISINE [Concomitant]
     Active Substance: INSULIN GLULISINE
     Indication: Diabetes mellitus
     Dosage: 7 U, TID
  4. METFORMIN [Concomitant]
     Active Substance: METFORMIN HYDROCHLORIDE
     Indication: Diabetes mellitus
     Dosage: 1000 MG, Q12H
     Route: 048
  5. ESOMEPRAZOLE [Concomitant]
     Active Substance: ESOMEPRAZOLE
     Dosage: UNK, QD
     Route: 048
  6. ASPIRIN [Concomitant]
     Active Substance: ASPIRIN
     Indication: Cardiovascular disorder
     Dosage: 100 MG, QD
     Route: 048
  7. NATALIZUMAB [Concomitant]
     Active Substance: NATALIZUMAB
     Indication: Multiple sclerosis
     Dosage: 300 MG, Q4W
     Route: 042
  8. DAPAGLIFLOZIN [Concomitant]
     Active Substance: DAPAGLIFLOZIN
     Indication: Diabetes mellitus
     Dosage: 1000 MG, HS
     Route: 048
  9. METFORMIN [Concomitant]
     Active Substance: METFORMIN HYDROCHLORIDE
     Indication: Diabetes mellitus
     Dosage: 1000 MG 1 DOSE EVERY 12 HOUR
     Route: 048
  10. FINGOLIMOD [Concomitant]
     Active Substance: FINGOLIMOD
     Indication: Multiple sclerosis
  11. ASPIRIN [Concomitant]
     Active Substance: ASPIRIN
     Indication: Cardiovascular disorder
     Dosage: 100 MG 1 DOSE EVERY 1 DAY
     Route: 048
  12. ATORVASTATIN [Concomitant]
     Active Substance: ATORVASTATIN
     Indication: Blood cholesterol increased
     Dosage: 40.000MG QD
     Dates: start: 2017

REACTIONS (10)
  - Glaucoma [Not Recovered/Not Resolved]
  - Increased appetite [Recovered/Resolved]
  - Blood cholesterol increased [Recovering/Resolving]
  - Muscle spasms [Recovered/Resolved]
  - Hypertension [Recovering/Resolving]
  - Overweight [Recovering/Resolving]
  - Injection site pain [Recovered/Resolved]
  - Hyperglycaemia [Recovering/Resolving]
  - Product dose omission issue [Recovering/Resolving]
  - Device mechanical issue [Unknown]

NARRATIVE: CASE EVENT DATE: 20130101
